FAERS Safety Report 14245687 (Version 5)
Quarter: 2018Q1

REPORT INFORMATION
  Report Type: Report from Study
  Country: CA (occurrence: CA)
  Receive Date: 20171204
  Receipt Date: 20180116
  Transmission Date: 20180508
  Serious: Yes (Other)
  Sender: FDA-Public Use
  Company Number: CA-ROCHE-2026218

PATIENT
  Age: 85 Year
  Sex: Male
  Weight: 61 kg

DRUGS (12)
  1. LASIX [Concomitant]
     Active Substance: FUROSEMIDE
  2. ESBRIET [Suspect]
     Active Substance: PIRFENIDONE
     Indication: IDIOPATHIC PULMONARY FIBROSIS
     Route: 048
     Dates: start: 20171110
  3. WARFARIN [Suspect]
     Active Substance: WARFARIN
     Indication: PRODUCT USED FOR UNKNOWN INDICATION
     Route: 065
  4. ESBRIET [Suspect]
     Active Substance: PIRFENIDONE
     Route: 048
     Dates: start: 2017
  5. ESBRIET [Suspect]
     Active Substance: PIRFENIDONE
     Route: 048
     Dates: start: 20171111, end: 20171116
  6. ESBRIET [Suspect]
     Active Substance: PIRFENIDONE
     Route: 048
     Dates: start: 20171124
  7. ESBRIET [Suspect]
     Active Substance: PIRFENIDONE
     Dosage: UNKNOWN
     Route: 048
     Dates: start: 20171119
  8. PROPAFENONE. [Concomitant]
     Active Substance: PROPAFENONE
     Indication: ATRIAL FIBRILLATION
     Route: 048
  9. ESBRIET [Suspect]
     Active Substance: PIRFENIDONE
     Dosage: UNKNOWN
     Route: 048
     Dates: start: 20171123
  10. ROSUVASTATIN. [Concomitant]
     Active Substance: ROSUVASTATIN
  11. BISOPROLOL [Concomitant]
     Active Substance: BISOPROLOL
     Indication: HEART RATE IRREGULAR
  12. TYLENOL [Concomitant]
     Active Substance: ACETAMINOPHEN

REACTIONS (10)
  - Pulse abnormal [Unknown]
  - Heart rate irregular [Recovering/Resolving]
  - Device malfunction [Unknown]
  - Electrocardiogram abnormal [Unknown]
  - Diarrhoea [Unknown]
  - International normalised ratio decreased [Unknown]
  - Heart rate increased [Recovering/Resolving]
  - Cardiac fibrillation [Recovering/Resolving]
  - Extrasystoles [Unknown]
  - Heart rate decreased [Unknown]

NARRATIVE: CASE EVENT DATE: 2017
